FAERS Safety Report 21554891 (Version 1)
Quarter: 2022Q4

REPORT INFORMATION
  Report Type: Spontaneous
  Country: US (occurrence: US)
  Receive Date: 20221104
  Receipt Date: 20221104
  Transmission Date: 20230112
  Serious: Yes (Life-Threatening, Hospitalization, Other)
  Sender: FDA-Public Use
  Company Number: US-MLMSERVICE-20221019-3864386-1

PATIENT
  Age: 55 Year
  Sex: Female

DRUGS (5)
  1. OMEPRAZOLE [Interacting]
     Active Substance: OMEPRAZOLE
     Indication: Product used for unknown indication
     Dosage: 20 MG, QD
     Route: 048
  2. ESCITALOPRAM [Interacting]
     Active Substance: ESCITALOPRAM OXALATE
     Indication: Product used for unknown indication
     Dosage: 10 MG, QD
  3. ESCITALOPRAM [Interacting]
     Active Substance: ESCITALOPRAM OXALATE
     Dosage: 20 MG, QD
  4. DILTIAZEM [Interacting]
     Active Substance: DILTIAZEM
     Indication: Product used for unknown indication
     Dosage: LONG-ACTING
  5. METOPROLOL [Interacting]
     Active Substance: METOPROLOL
     Indication: Product used for unknown indication
     Dosage: 300 MG, QD

REACTIONS (3)
  - Atrioventricular block complete [Recovering/Resolving]
  - Drug interaction [Unknown]
  - Drug level increased [Unknown]
